FAERS Safety Report 14393519 (Version 1)
Quarter: 2018Q1

REPORT INFORMATION
  Report Type: Spontaneous
  Country: US (occurrence: US)
  Receive Date: 20180116
  Receipt Date: 20180116
  Transmission Date: 20180509
  Serious: Yes (Other)
  Sender: FDA-Public Use
  Company Number: None

PATIENT
  Age: 64 Year
  Sex: Male
  Weight: 88.45 kg

DRUGS (12)
  1. PLAVIX [Concomitant]
     Active Substance: CLOPIDOGREL BISULFATE
  2. VITAMIN E [Concomitant]
     Active Substance: .ALPHA.-TOCOPHEROL
  3. CENTRUM MULTIVITMIN [Concomitant]
  4. SYNTHROID [Concomitant]
     Active Substance: LEVOTHYROXINE SODIUM
  5. JANUVIA [Concomitant]
     Active Substance: SITAGLIPTIN PHOSPHATE
  6. D-MANNOSE [Concomitant]
  7. VITAMIN B [Concomitant]
     Active Substance: VITAMIN B
  8. OLMESARTAN/HCTZ TAB 40-12.5 [Suspect]
     Active Substance: HYDROCHLOROTHIAZIDE\OLMESARTAN MEDOXOMIL
     Indication: PRODUCT USED FOR UNKNOWN INDICATION
     Dosage: 40MG/12.5 MG 1 PILL ONCE IN AM ORAL MOUTH
     Route: 048
     Dates: start: 20171205
  9. PIOGLITAZONE. [Concomitant]
     Active Substance: PIOGLITAZONE
  10. METFORMIN [Concomitant]
     Active Substance: METFORMIN HYDROCHLORIDE
  11. ATORVASTIN [Concomitant]
     Active Substance: ATORVASTATIN
  12. MYRBETRIQ [Concomitant]
     Active Substance: MIRABEGRON

REACTIONS (2)
  - Diarrhoea [None]
  - Malabsorption [None]

NARRATIVE: CASE EVENT DATE: 20171220
